FAERS Safety Report 5652832-X (Version None)
Quarter: 2008Q1

REPORT INFORMATION
  Report Type: 
  Country: None (occurrence: None)
  Receive Date: 20080305
  Receipt Date: 20080305
  Transmission Date: 20080703
  Serious: Yes (Other)
  Sender: FDA-Public Use
  Company Number: None

PATIENT
  Age: 47 Year
  Sex: Male
  Weight: 89.8122 kg

DRUGS (1)
  1. VERAMYST [Suspect]
     Indication: MULTIPLE ALLERGIES
     Dosage: 2 SQUIRTS EACH NOSTRIL ONCE DAILY NASAL
     Route: 045
     Dates: start: 20071005, end: 20080305

REACTIONS (2)
  - SINUSITIS [None]
  - THERAPEUTIC RESPONSE DECREASED [None]
